FAERS Safety Report 9051067 (Version 2)
Quarter: 2013Q2

REPORT INFORMATION
  Report Type: Spontaneous
  Country: US (occurrence: US)
  Receive Date: 20130206
  Receipt Date: 20130613
  Transmission Date: 20140414
  Serious: No
  Sender: FDA-Public Use
  Company Number: US-B.I. PHARMACEUTICALS,INC./RIDGEFIELD-2013-BI-03245BP

PATIENT
  Age: 81 Year
  Sex: Female
  Weight: 70 kg

DRUGS (16)
  1. PRADAXA [Suspect]
     Indication: ATRIAL FIBRILLATION
     Dosage: 300 MG
     Route: 048
     Dates: start: 20130119
  2. PRADAXA [Suspect]
     Dosage: 300 MG
     Route: 048
     Dates: start: 201301
  3. AMLODIPINE [Concomitant]
     Indication: HYPERTENSION
     Dosage: 5 MG
     Route: 048
  4. SOTALOL [Concomitant]
     Indication: ATRIAL FIBRILLATION
     Dosage: 40 MG
     Route: 048
  5. KLORCON [Concomitant]
     Dosage: 20 MEQ
     Route: 048
  6. OMEPRAZOLE [Concomitant]
     Dosage: 40 MG
     Route: 048
  7. LEVOTHYROXINE [Concomitant]
     Indication: THYROIDECTOMY
     Dosage: 137 MCG
     Route: 048
  8. CALCIUM [Concomitant]
     Dosage: 600 MG
     Route: 048
  9. CHOLECALCIFEROL [Concomitant]
     Dosage: 1000 U
     Route: 048
  10. SYNTHROID [Concomitant]
     Indication: THYROIDECTOMY
     Dosage: 137 MCG
     Route: 048
  11. ATIVAN [Concomitant]
     Indication: ANXIETY
     Dosage: 1 MG
     Route: 048
  12. POTASSIUM CHLORIDE [Concomitant]
     Dosage: 10 MEQ
     Route: 048
  13. MULTIVITAMIN [Concomitant]
     Route: 048
  14. PRILOSEC [Concomitant]
     Indication: GASTROOESOPHAGEAL REFLUX DISEASE
     Dosage: 40 MG
     Route: 048
  15. PROMETHAZINE [Concomitant]
     Dosage: 12.5 MG
     Route: 048
  16. TRAZADONE [Concomitant]
     Indication: DEPRESSION
     Dosage: 50 MG
     Route: 048

REACTIONS (3)
  - Dizziness [Not Recovered/Not Resolved]
  - Diarrhoea [Recovered/Resolved]
  - Melaena [Recovered/Resolved]
